FAERS Safety Report 20880512 (Version 1)
Quarter: 2022Q2

REPORT INFORMATION
  Report Type: Spontaneous
  Country: US (occurrence: US)
  Receive Date: 20220526
  Receipt Date: 20220526
  Transmission Date: 20220721
  Serious: Yes (Other)
  Sender: FDA-Public Use
  Company Number: US-LUNDBECK-DKLU3048368

PATIENT
  Sex: Female

DRUGS (1)
  1. VYEPTI [Suspect]
     Active Substance: EPTINEZUMAB-JJMR
     Indication: Migraine
     Dosage: 3-4 VYEPTI INFUSIONS
     Route: 041

REACTIONS (3)
  - Loss of consciousness [Unknown]
  - Alcohol intolerance [Unknown]
  - Memory impairment [Unknown]
